FAERS Safety Report 7391715-4 (Version None)
Quarter: 2011Q2

REPORT INFORMATION
  Report Type: 
  Country: None (occurrence: None)
  Receive Date: 20110404
  Receipt Date: 20110329
  Transmission Date: 20111010
  Serious: Yes (Death, Life-Threatening, Hospitalization)
  Sender: FDA-Public Use
  Company Number: GXKR2011DE01353

PATIENT
  Age: 84 Year
  Sex: Male

DRUGS (14)
  1. DIPIPERON [Suspect]
     Dosage: 15 MG/DAILY
     Route: 048
     Dates: start: 20101119
  2. GLIMEPIRIDE [Concomitant]
     Dosage: 1.5 MG/DAILY
     Route: 048
     Dates: end: 20101121
  3. MAGNESIUM [Concomitant]
     Dosage: 1 DF/DAILY
     Route: 048
     Dates: end: 20101121
  4. DIPIPERON [Suspect]
     Dosage: 20 MG/DAILY
     Route: 048
     Dates: start: 20101120
  5. OXAZEPAM [Suspect]
     Dosage: 5 MG/DAILY
     Route: 048
     Dates: start: 20101121
  6. HYDROCHLOROTHIAZDE TAB [Concomitant]
     Dosage: 12.5 MG/DAILY
     Route: 048
     Dates: end: 20101121
  7. RISPERDAL [Suspect]
     Dosage: 0.5 MG/DAILY
     Route: 048
     Dates: start: 20101118, end: 20101120
  8. DIGIMERCK [Concomitant]
     Dosage: 0.07 MG/DAILY
     Route: 048
     Dates: end: 20101121
  9. ASPIRIN [Concomitant]
     Dosage: 100 MG/DAILY
     Route: 048
     Dates: end: 20101121
  10. CLEXANE [Concomitant]
     Dosage: 0.4 ML/DAILY
     Route: 058
     Dates: start: 20101118, end: 20101121
  11. RISPERDAL [Suspect]
     Dosage: 1 MG/DAILY
     Route: 048
     Dates: start: 20101121
  12. CONCOR [Concomitant]
     Dosage: 2.5 MG/DAILY
     Route: 048
     Dates: end: 20101121
  13. AMLODIPINE [Concomitant]
     Dosage: 2.5 MG/DAILY
     Route: 048
     Dates: end: 20101121
  14. LORZAAR [Concomitant]
     Dosage: 50 MG/DAILY
     Route: 048
     Dates: end: 20101121

REACTIONS (1)
  - RESPIRATORY FAILURE [None]
